FAERS Safety Report 19065224 (Version 1)
Quarter: 2021Q1

REPORT INFORMATION
  Report Type: Spontaneous
  Country: US (occurrence: US)
  Receive Date: 20210327
  Receipt Date: 20210327
  Transmission Date: 20210420
  Serious: No
  Sender: FDA-Public Use
  Company Number: US-SA-2021SA103078

PATIENT
  Sex: Female

DRUGS (3)
  1. AUBAGIO [Suspect]
     Active Substance: TERIFLUNOMIDE
     Indication: MULTIPLE SCLEROSIS
     Dosage: UNK
     Route: 048
  2. OXYCODONE [Concomitant]
     Active Substance: OXYCODONE
  3. TIZANIDINE. [Concomitant]
     Active Substance: TIZANIDINE

REACTIONS (4)
  - Condition aggravated [Unknown]
  - Intervertebral disc protrusion [Unknown]
  - Nerve compression [Unknown]
  - Neuralgia [Not Recovered/Not Resolved]
